FAERS Safety Report 24175603 (Version 1)
Quarter: 2024Q3

REPORT INFORMATION
  Report Type: Report from Study
  Country: EC (occurrence: EC)
  Receive Date: 20240805
  Receipt Date: 20240805
  Transmission Date: 20241017
  Serious: Yes (Death, Hospitalization, Other)
  Sender: IPSEN
  Company Number: EC-IPSEN Group, Research and Development-2024-15440

PATIENT
  Age: 86 Year
  Sex: Male

DRUGS (4)
  1. DYSPORT [Suspect]
     Active Substance: ABOBOTULINUMTOXINA
     Indication: Hemiplegia
     Route: 058
     Dates: start: 20240430, end: 20240430
  2. LOSARTAN [Concomitant]
     Active Substance: LOSARTAN
     Dosage: 50 MG ONCE A DAY AT 7 AM
  3. VONOPRAZAN [Concomitant]
     Active Substance: VONOPRAZAN
     Dosage: 20 MG?ONCE A DAY AT 2 PM
  4. CARVEDILOL [Concomitant]
     Active Substance: CARVEDILOL
     Dosage: 40 MG ONCE A DAY AT 8 PM

REACTIONS (5)
  - Cardiac arrest [Fatal]
  - Arrhythmia [Unknown]
  - Yellow skin [Unknown]
  - Abdominal pain upper [Unknown]
  - Neoplasm [Unknown]

NARRATIVE: CASE EVENT DATE: 20240531
